FAERS Safety Report 12413483 (Version 4)
Quarter: 2016Q2

REPORT INFORMATION
  Report Type: Spontaneous
  Country: US (occurrence: US)
  Receive Date: 20160527
  Receipt Date: 20160629
  Transmission Date: 20160815
  Serious: Yes (Hospitalization)
  Sender: FDA-Public Use
  Company Number: US-UNITED THERAPEUTICS-UNT-2016-008371

PATIENT
  Age: 23 Year
  Sex: Female
  Weight: 52.15 kg

DRUGS (4)
  1. REMODULIN [Suspect]
     Active Substance: TREPROSTINIL
     Dosage: 0.169 ?G/KG, CONTINUING
     Route: 041
  2. REVATIO [Concomitant]
     Active Substance: SILDENAFIL CITRATE
     Indication: PRODUCT USED FOR UNKNOWN INDICATION
  3. COUMADIN [Suspect]
     Active Substance: WARFARIN SODIUM
     Indication: PRODUCT USED FOR UNKNOWN INDICATION
  4. REMODULIN [Suspect]
     Active Substance: TREPROSTINIL
     Indication: PULMONARY HYPERTENSION
     Dosage: 0.168 ?G/KG, CONTINUING
     Route: 041
     Dates: start: 20100216

REACTIONS (5)
  - Complication associated with device [Unknown]
  - Device related infection [Unknown]
  - Haemoptysis [Unknown]
  - Haemorrhage [Unknown]
  - Pulmonary haemorrhage [Unknown]

NARRATIVE: CASE EVENT DATE: 20160518
